FAERS Safety Report 18169240 (Version 1)
Quarter: 2020Q3

REPORT INFORMATION
  Report Type: Spontaneous
  Country: US (occurrence: US)
  Receive Date: 20200819
  Receipt Date: 20200819
  Transmission Date: 20201103
  Serious: Yes (Other)
  Sender: FDA-Public Use
  Company Number: None

PATIENT
  Age: 39 Year
  Sex: Female
  Weight: 73 kg

DRUGS (1)
  1. FEMICLEAR 2 DAY [Suspect]
     Active Substance: CALENDULA OFFICINALIS FLOWERING TOP\MELALEUCA CAJUPUTI LEAF OIL\OLEA EUROPAEA FRUIT VOLATILE OIL
     Indication: VULVOVAGINAL MYCOTIC INFECTION
     Dosage: ?          QUANTITY:0.5 OUNCE(S);?
     Route: 067

REACTIONS (2)
  - Adverse drug reaction [None]
  - Suspected product quality issue [None]

NARRATIVE: CASE EVENT DATE: 20200818
